FAERS Safety Report 8111948-9 (Version None)
Quarter: 2012Q1

REPORT INFORMATION
  Report Type: 
  Country: None (occurrence: None)
  Receive Date: 20120203
  Receipt Date: 20110803
  Transmission Date: 20120608
  Serious: No
  Sender: FDA-Public Use
  Company Number: US-GLAXOSMITHKLINE-A0939542A

PATIENT
  Age: 70 Year
  Sex: Female

DRUGS (17)
  1. ARIXTRA [Suspect]
     Indication: PULMONARY EMBOLISM
     Dosage: 7.5MG PER DAY
     Route: 058
     Dates: start: 20110615
  2. VITAMIN B6 [Concomitant]
     Dosage: 200MG PER DAY
  3. ALLEGRA [Concomitant]
     Dosage: 180MG PER DAY
  4. NEXIUM [Concomitant]
     Dosage: 20MG PER DAY
  5. ZOLOFT [Concomitant]
     Dosage: 50MG PER DAY
  6. XANAX [Concomitant]
     Dosage: .5MG PER DAY
  7. MOBIC [Concomitant]
     Dosage: 7.5MG PER DAY
  8. ASPIRIN [Concomitant]
     Dosage: 81MG PER DAY
  9. METHOTREXATE [Concomitant]
     Dosage: 2.5MG PER DAY
  10. VITAMIN D [Concomitant]
     Dosage: 1000U PER DAY
  11. FOLIC ACID [Concomitant]
     Dosage: 1MG PER DAY
  12. MULTI-VITAMIN [Concomitant]
  13. BENEFIBER [Concomitant]
  14. NORVASC [Concomitant]
     Dosage: 5MG PER DAY
  15. TOPROL-XL [Concomitant]
     Dosage: 50MG PER DAY
  16. HYDROCHLOROTHIAZIDE [Concomitant]
     Dosage: 25MG PER DAY
  17. BENTYL [Concomitant]
     Dosage: 20MG THREE TIMES PER DAY

REACTIONS (2)
  - BLOOD URINE PRESENT [None]
  - DRUG INTERACTION [None]
